FAERS Safety Report 7016991-9 (Version None)
Quarter: 2010Q3

REPORT INFORMATION
  Report Type: 
  Country: None (occurrence: None)
  Receive Date: 20100927
  Receipt Date: 20100916
  Transmission Date: 20110219
  Serious: Yes (Hospitalization, Other)
  Sender: FDA-Public Use
  Company Number: US-PFIZER INC-2010111280

PATIENT
  Sex: Female
  Weight: 77.1 kg

DRUGS (3)
  1. NEURONTIN [Suspect]
     Indication: NEUROPATHY PERIPHERAL
     Dosage: UNK
     Route: 048
     Dates: start: 20090801, end: 20090801
  2. XANAX [Concomitant]
     Dosage: UNK
  3. VICODIN [Concomitant]
     Indication: PAIN
     Dosage: UNK

REACTIONS (9)
  - BLINDNESS TRANSIENT [None]
  - DEAFNESS [None]
  - EYE IRRITATION [None]
  - FEELING ABNORMAL [None]
  - GUILLAIN-BARRE SYNDROME [None]
  - NAUSEA [None]
  - PRURITUS [None]
  - SCRATCH [None]
  - VOMITING [None]
